FAERS Safety Report 9899569 (Version 1)
Quarter: 2014Q1

REPORT INFORMATION
  Report Type: Spontaneous
  Country: IT (occurrence: IT)
  Receive Date: 20140214
  Receipt Date: 20140214
  Transmission Date: 20141002
  Serious: Yes (Hospitalization)
  Sender: FDA-Public Use
  Company Number: IT-ABBVIE-14P-083-1201815-00

PATIENT
  Age: 11 Year
  Sex: Male
  Weight: 27 kg

DRUGS (4)
  1. MACLADIN [Suspect]
     Indication: PYREXIA
     Dosage: 0.5 ML PER KG OF BODY WEIGHT
     Route: 048
     Dates: start: 20131119, end: 20131120
  2. AUGMENTIN [Suspect]
     Indication: PYREXIA
     Dosage: 0.5 ML PER KG OF BODY WEIGHT
     Route: 048
     Dates: start: 20131118, end: 20131120
  3. BENTELAN [Suspect]
     Indication: COUGH
     Route: 048
     Dates: start: 20131119, end: 20131120
  4. AIRCORT [Suspect]
     Indication: COUGH
     Route: 055
     Dates: start: 20131118, end: 20131120

REACTIONS (3)
  - Lip disorder [Recovering/Resolving]
  - Stomatitis [Recovering/Resolving]
  - Lip swelling [Unknown]
